FAERS Safety Report 14343906 (Version 1)
Quarter: 2018Q1

REPORT INFORMATION
  Report Type: Report from Study
  Country: US (occurrence: US)
  Receive Date: 20180102
  Receipt Date: 20180102
  Transmission Date: 20180509
  Serious: Yes (Hospitalization, Other)
  Sender: FDA-Public Use
  Company Number: US-ARIAD PHARMACEUTICALS, INC-2017US008860

PATIENT
  Sex: Male

DRUGS (1)
  1. PONATINIB [Suspect]
     Active Substance: PONATINIB
     Indication: MYELOID LEUKAEMIA
     Dosage: 45 MG, QD
     Route: 048
     Dates: start: 20170823

REACTIONS (7)
  - Malaise [Unknown]
  - Localised infection [Unknown]
  - Chemotherapy [Unknown]
  - Vomiting [Unknown]
  - Bone marrow transplant [Unknown]
  - Chronic myeloid leukaemia transformation [Unknown]
  - Drug eruption [Unknown]
